FAERS Safety Report 16665273 (Version 2)
Quarter: 2022Q3

REPORT INFORMATION
  Report Type: Spontaneous
  Country: US (occurrence: US)
  Receive Date: 20190803
  Receipt Date: 20220805
  Transmission Date: 20221027
  Serious: Yes (Other)
  Sender: FDA-Public Use
  Company Number: US-ACCORD-128736

PATIENT
  Age: 66 Year
  Sex: Female
  Weight: 145.15 kg

DRUGS (9)
  1. DOCETAXEL [Suspect]
     Active Substance: DOCETAXEL
     Indication: Breast cancer
     Dates: start: 20171011, end: 20171213
  2. CYTOXAN [Suspect]
     Active Substance: CYCLOPHOSPHAMIDE
     Indication: Breast cancer
     Dates: start: 20171011, end: 20171213
  3. CELECOXIB [Concomitant]
     Active Substance: CELECOXIB
     Dosage: 20 MG
     Dates: start: 2014
  4. CHOLECALCIFEROL [Concomitant]
     Active Substance: CHOLECALCIFEROL
     Dosage: 2000 UNITS
     Dates: start: 2014
  5. Duloxetine EC [Concomitant]
     Dosage: 60 MG
  6. OXYBUTYNIN [Concomitant]
     Active Substance: OXYBUTYNIN
     Dosage: STRENGTH: 5 MG
  7. AMLODIPINE [Concomitant]
     Active Substance: AMLODIPINE BESYLATE
     Dosage: STRENGTH: 10 MG
     Dates: start: 2014
  8. LISINOPRIL [Concomitant]
     Active Substance: LISINOPRIL
     Dosage: STRENGTH: 40 MG
     Dates: start: 2014
  9. ANASTROZOLE [Concomitant]
     Active Substance: ANASTROZOLE
     Dosage: STRENGTH: 1 MG

REACTIONS (1)
  - Alopecia [Not Recovered/Not Resolved]

NARRATIVE: CASE EVENT DATE: 20180301
